FAERS Safety Report 5528520-7 (Version None)
Quarter: 2007Q4

REPORT INFORMATION
  Report Type: 
  Country: None (occurrence: None)
  Receive Date: 20071123
  Receipt Date: 20071106
  Transmission Date: 20080405
  Serious: Yes (Life-Threatening, Hospitalization)
  Sender: FDA-Public Use
  Company Number: 2007S1011574

PATIENT
  Age: 75 Year
  Sex: Male

DRUGS (16)
  1. CLARITHROMYCIN [Suspect]
     Indication: INFECTION
     Dosage: 500MG;TWICE A DAY ORAL
     Route: 048
     Dates: start: 20070913, end: 20070914
  2. LAMOTRIGINE [Suspect]
     Dosage: 50 MG;TWICE A DAY ORAL
     Route: 048
     Dates: start: 20050601
  3. EPINEPHRINE [Concomitant]
  4. ASPIRIN [Concomitant]
  5. BECLAZONE (BECLOMETASONE DIPROPIONATE) [Concomitant]
  6. ENOXAPARIN SODIUM [Concomitant]
  7. CO-AMILOFRUSE (FRUMIL) [Concomitant]
  8. DOPAMINE HCL [Concomitant]
  9. FUROSEMIDE [Concomitant]
  10. INSULIN [Concomitant]
  11. NICORANDIL [Concomitant]
  12. NOREPINEPHRINE BITARTRATE [Concomitant]
  13. PARACETAMOL [Concomitant]
  14. SIMVASTATIN [Concomitant]
  15. THEOPHYLLINE [Concomitant]
  16. WARFARIN SODIUM [Concomitant]

REACTIONS (5)
  - CONVULSION [None]
  - DRUG INTERACTION [None]
  - FOAMING AT MOUTH [None]
  - OBSTRUCTIVE AIRWAYS DISORDER [None]
  - TREMOR [None]
